FAERS Safety Report 19250189 (Version 1)
Quarter: 2021Q2

REPORT INFORMATION
  Report Type: Report from Study
  Country: None (occurrence: US)
  Receive Date: 20210513
  Receipt Date: 20210513
  Transmission Date: 20210717
  Serious: Yes (Other)
  Sender: FDA-Public Use
  Company Number: US-ABBVIE-20K-163-3389633-00

PATIENT
  Age: 60 Year
  Sex: Female

DRUGS (2)
  1. HUMIRA [Suspect]
     Active Substance: ADALIMUMAB
     Indication: ANKYLOSING SPONDYLITIS
     Route: 058
     Dates: start: 20200324
  2. HUMIRA [Suspect]
     Active Substance: ADALIMUMAB
     Indication: UVEITIS

REACTIONS (40)
  - Blindness unilateral [Unknown]
  - Joint range of motion decreased [Not Recovered/Not Resolved]
  - Eye pruritus [Unknown]
  - Pyrexia [Recovered/Resolved]
  - Peripheral swelling [Recovered/Resolved]
  - Inflammation [Unknown]
  - Migraine [Not Recovered/Not Resolved]
  - Uveitis [Unknown]
  - Mobility decreased [Not Recovered/Not Resolved]
  - Nerve injury [Not Recovered/Not Resolved]
  - Joint swelling [Not Recovered/Not Resolved]
  - Lip pruritus [Unknown]
  - Night sweats [Unknown]
  - Visual impairment [Recovering/Resolving]
  - Arthralgia [Not Recovered/Not Resolved]
  - Tenderness [Recovering/Resolving]
  - Back pain [Unknown]
  - Nasopharyngitis [Not Recovered/Not Resolved]
  - Fatigue [Not Recovered/Not Resolved]
  - Musculoskeletal stiffness [Recovering/Resolving]
  - Peripheral swelling [Unknown]
  - Discomfort [Recovering/Resolving]
  - Back injury [Not Recovered/Not Resolved]
  - Joint injury [Not Recovered/Not Resolved]
  - Bronchitis [Unknown]
  - Aneurysm [Unknown]
  - Nasal pruritus [Unknown]
  - Eye pain [Recovering/Resolving]
  - Injection site erythema [Unknown]
  - General physical condition abnormal [Not Recovered/Not Resolved]
  - Neck pain [Not Recovered/Not Resolved]
  - Pruritus [Unknown]
  - Fatigue [Recovered/Resolved]
  - Injection site bruising [Unknown]
  - Cartilage injury [Unknown]
  - Brain operation [Unknown]
  - Dysstasia [Recovering/Resolving]
  - Loss of personal independence in daily activities [Not Recovered/Not Resolved]
  - Hypernatraemia [Unknown]
  - Dyspnoea [Recovered/Resolved]

NARRATIVE: CASE EVENT DATE: 2020
